FAERS Safety Report 13698645 (Version 1)
Quarter: 2017Q2

REPORT INFORMATION
  Report Type: Report from Study
  Country: NL (occurrence: NL)
  Receive Date: 20170628
  Receipt Date: 20170628
  Transmission Date: 20170830
  Serious: Yes (Death)
  Sender: FDA-Public Use
  Company Number: NL-ACTELION-A-NJ2017-156032

PATIENT
  Sex: Female

DRUGS (18)
  1. REVATIO [Concomitant]
     Active Substance: SILDENAFIL CITRATE
  2. OXAZEPAM. [Concomitant]
     Active Substance: OXAZEPAM
  3. FERROUS SULFATE. [Concomitant]
     Active Substance: FERROUS SULFATE
  4. MAGNESIUM [Concomitant]
     Active Substance: MAGNESIUM
  5. TEMAZEPAM. [Concomitant]
     Active Substance: TEMAZEPAM
  6. ALLOPURINOL. [Concomitant]
     Active Substance: ALLOPURINOL
  7. LANOXIN [Concomitant]
     Active Substance: DIGOXIN
  8. FLUIMUCIL [Concomitant]
     Active Substance: ACETYLCYSTEINE
  9. BUMETANIDE. [Concomitant]
     Active Substance: BUMETANIDE
  10. INHIBIN [Concomitant]
  11. ACENOCOUMAROL [Concomitant]
     Active Substance: ACENOCOUMAROL
  12. VENTAVIS [Suspect]
     Active Substance: ILOPROST
     Indication: PULMONARY ARTERIAL HYPERTENSION
     Dosage: UNK
     Route: 055
     Dates: start: 20130826
  13. TRACLEER [Concomitant]
     Active Substance: BOSENTAN
     Indication: PULMONARY ARTERIAL HYPERTENSION
  14. IPRATROPIUM BROMIDE. [Concomitant]
     Active Substance: IPRATROPIUM BROMIDE
  15. SPIRONOLACTONE. [Concomitant]
     Active Substance: SPIRONOLACTONE
  16. PARACETAMOL [Concomitant]
     Active Substance: ACETAMINOPHEN
  17. COLECALCIFEROL [Concomitant]
     Active Substance: CHOLECALCIFEROL
  18. OMEPRAZOLE. [Concomitant]
     Active Substance: OMEPRAZOLE

REACTIONS (1)
  - Death [Fatal]
